FAERS Safety Report 6174925-3 (Version None)
Quarter: 2009Q2

REPORT INFORMATION
  Report Type: 
  Country: None (occurrence: None)
  Receive Date: 20090430
  Receipt Date: 20081013
  Transmission Date: 20091009
  Serious: Yes (Hospitalization)
  Sender: FDA-Public Use
  Company Number: US-ASTRAZENECA-2008UW22351

PATIENT
  Age: 49 Year
  Sex: Female

DRUGS (13)
  1. NEXIUM [Suspect]
     Route: 048
  2. RELAFEN [Concomitant]
  3. XANAX [Concomitant]
  4. DARVOCET [Concomitant]
  5. TENORETIC 100 [Concomitant]
  6. MICRO-K [Concomitant]
  7. FLEXERIL [Concomitant]
  8. VYTORIN [Concomitant]
  9. VITAMINS [Concomitant]
  10. CALTRATE [Concomitant]
  11. COLACE [Concomitant]
  12. FLAXSEED OIL [Concomitant]
  13. BENADRYL [Concomitant]

REACTIONS (1)
  - CHEST PAIN [None]
